FAERS Safety Report 23058256 (Version 6)
Quarter: 2024Q4

REPORT INFORMATION
  Report Type: Spontaneous
  Country: US (occurrence: US)
  Receive Date: 20231012
  Receipt Date: 20241210
  Transmission Date: 20250115
  Serious: Yes (Other)
  Sender: ASTELLAS
  Company Number: US-ASTELLAS-2023US029939

PATIENT
  Age: 43 Year
  Sex: Female

DRUGS (3)
  1. IZERVAY [Suspect]
     Active Substance: AVACINCAPTAD PEGOL SODIUM
     Indication: Stargardt^s disease
     Dosage: UNK UNK, UNKNOWN FREQ. (RIGHT EYE) (OD)
     Dates: start: 20230926
  2. PEGCETACOPLAN [Suspect]
     Active Substance: PEGCETACOPLAN
     Indication: Stargardt^s disease
     Dosage: UNK UNK, UNKNOWN FREQ. (1ST INJECTION)
     Dates: start: 20230922
  3. PREDNISONE [Concomitant]
     Active Substance: PREDNISONE
     Indication: Retinal vasculitis
     Route: 048

REACTIONS (2)
  - Haemorrhagic occlusive retinal vasculitis [Recovering/Resolving]
  - Off label use [Unknown]

NARRATIVE: CASE EVENT DATE: 20230926
